FAERS Safety Report 7458114-8 (Version None)
Quarter: 2011Q2

REPORT INFORMATION
  Report Type: 
  Country: None (occurrence: None)
  Receive Date: 20110504
  Receipt Date: 20110429
  Transmission Date: 20111010
  Serious: Yes (Other)
  Sender: FDA-Public Use
  Company Number: A0925175A

PATIENT
  Age: 18 Year
  Sex: Female

DRUGS (2)
  1. VITAMIN TAB [Suspect]
     Indication: SUPPLEMENTATION THERAPY
  2. ALLI [Suspect]
     Indication: WEIGHT LOSS DIET
     Route: 048
     Dates: start: 20100101

REACTIONS (7)
  - AMENORRHOEA [None]
  - INFERTILITY [None]
  - HORMONE LEVEL ABNORMAL [None]
  - FAECAL INCONTINENCE [None]
  - DISCOMFORT [None]
  - DRUG INTERACTION [None]
  - RECTAL DISCHARGE [None]
